FAERS Safety Report 11593640 (Version 1)
Quarter: 2015Q4

REPORT INFORMATION
  Report Type: Other
  Country: AU (occurrence: AU)
  Receive Date: 20151005
  Receipt Date: 20151005
  Transmission Date: 20160304
  Serious: Yes (Other)
  Sender: FDA-Public Use
  Company Number: AU-SHIRE-AU201512302

PATIENT

DRUGS (2)
  1. VYVANSE [Suspect]
     Active Substance: LISDEXAMFETAMINE DIMESYLATE
     Indication: ATTENTION DEFICIT/HYPERACTIVITY DISORDER
     Dosage: UNK, UNKNOWN
     Route: 048
  2. VYVANSE [Suspect]
     Active Substance: LISDEXAMFETAMINE DIMESYLATE
     Dosage: 50 MG, UNKNOWN
     Route: 048

REACTIONS (5)
  - Insomnia [Unknown]
  - Seizure [Unknown]
  - Heart rate increased [Unknown]
  - Decreased appetite [Unknown]
  - Disturbance in social behaviour [Unknown]
